FAERS Safety Report 18117028 (Version 5)
Quarter: 2021Q3

REPORT INFORMATION
  Report Type: Report from Study
  Country: US (occurrence: US)
  Receive Date: 20200805
  Receipt Date: 20210729
  Transmission Date: 20211014
  Serious: No
  Sender: FDA-Public Use
  Company Number: NVSC2020US217632

PATIENT
  Age: 15 Year
  Sex: Female

DRUGS (1)
  1. AFINITOR [Suspect]
     Active Substance: EVEROLIMUS
     Indication: TUBEROUS SCLEROSIS COMPLEX
     Dosage: 7.5 MG, QD
     Route: 048
     Dates: start: 20110412, end: 20210204

REACTIONS (4)
  - Inappropriate schedule of product administration [Unknown]
  - Blood pressure increased [Unknown]
  - Product availability issue [Unknown]
  - Eye naevus [Unknown]

NARRATIVE: CASE EVENT DATE: 2019
